FAERS Safety Report 5657143-4 (Version None)
Quarter: 2008Q1

REPORT INFORMATION
  Report Type: 
  Country: None (occurrence: None)
  Receive Date: 20080310
  Receipt Date: 20080227
  Transmission Date: 20080703
  Serious: Yes (Hospitalization, Other)
  Sender: FDA-Public Use
  Company Number: US-MERCK-0609USA00785

PATIENT
  Age: 55 Year
  Sex: Female
  Weight: 83 kg

DRUGS (2)
  1. FOSAMAX [Suspect]
     Indication: OSTEOPOROSIS
     Route: 048
     Dates: start: 20000101, end: 20060101
  2. FOSAMAX PLUS D [Concomitant]
     Route: 048
     Dates: start: 20070201

REACTIONS (21)
  - ANAEMIA [None]
  - BACK PAIN [None]
  - BRONCHITIS [None]
  - CELLULITIS [None]
  - CERVICITIS TRICHOMONAL [None]
  - CHEST PAIN [None]
  - COAGULOPATHY [None]
  - CYSTITIS [None]
  - DEEP VEIN THROMBOSIS [None]
  - FEMUR FRACTURE [None]
  - GENITAL LESION [None]
  - HAEMOGLOBIN DECREASED [None]
  - HAEMORRHAGIC DISORDER [None]
  - MIGRAINE [None]
  - OSTEOARTHRITIS [None]
  - OSTEONECROSIS [None]
  - PAIN [None]
  - PAIN IN EXTREMITY [None]
  - PALPITATIONS [None]
  - RADICULOPATHY [None]
  - TOOTH DISORDER [None]
